FAERS Safety Report 16573610 (Version 1)
Quarter: 2019Q3

REPORT INFORMATION
  Report Type: Spontaneous
  Country: DE (occurrence: DE)
  Receive Date: 20190715
  Receipt Date: 20190715
  Transmission Date: 20191004
  Serious: Yes (Hospitalization)
  Sender: FDA-Public Use
  Company Number: DE-TEVA-2019-DE-1077099

PATIENT
  Age: 78 Year
  Sex: Male

DRUGS (11)
  1. BERLINSULIN H NORMAL PATRONE 3ML PEN [Concomitant]
     Dosage: NK IE, 5-5-6-0
  2. FUROSEMIDE. [Concomitant]
     Active Substance: FUROSEMIDE
     Dosage: 20 MG, 1-0-0-0
  3. AZACITIDINE. [Suspect]
     Active Substance: AZACITIDINE
     Dosage: NK MG, MOST RECENTLY ON 18.11.2017
  4. SIMVASTATIN. [Concomitant]
     Active Substance: SIMVASTATIN
     Dosage: 40 MG, 0-0-1-0
  5. VERGENTAN [Concomitant]
     Active Substance: ALIZAPRIDE HYDROCHLORIDE
     Dosage: NK MG, NEED
  6. ASS 100 [Concomitant]
     Active Substance: ASPIRIN
     Dosage: 100 MG, 0-1-0-0
  7. MOVICOL [Concomitant]
     Active Substance: POLYETHYLENE GLYCOL 3350\POTASSIUM CHLORIDE\SODIUM BICARBONATE\SODIUM CHLORIDE
     Dosage: NK MG, 1-0-0-0
  8. RAMIPRIL. [Concomitant]
     Active Substance: RAMIPRIL
     Dosage: 5 MG, 1-0-0.5-0
  9. LANTUS [Concomitant]
     Active Substance: INSULIN GLARGINE
     Dosage: 14 IE, 0-0-0-1; 20:00
  10. GRANISETRON [Suspect]
     Active Substance: GRANISETRON
     Dosage: NK MG, ALWAYS ON CHEMOTAGES; LAST ON 18.11.2017
  11. DEXAMETHASONE. [Suspect]
     Active Substance: DEXAMETHASONE
     Dosage: 4 MG, ON CHEMOTAGEN; LAST ON 18.11.2017

REACTIONS (1)
  - Tachycardia [Unknown]

NARRATIVE: CASE EVENT DATE: 20180110
